FAERS Safety Report 15679765 (Version 1)
Quarter: 2018Q4

REPORT INFORMATION
  Report Type: Report from Study
  Country: FR (occurrence: FR)
  Receive Date: 20181203
  Receipt Date: 20181203
  Transmission Date: 20190205
  Serious: Yes (Hospitalization)
  Sender: FDA-Public Use
  Company Number: FR-ROCHE-2077119

PATIENT
  Age: 73 Year
  Sex: Male
  Weight: 79.35 kg

DRUGS (31)
  1. ATEZOLIZUMAB. [Suspect]
     Active Substance: ATEZOLIZUMAB
     Indication: BLADDER TRANSITIONAL CELL CARCINOMA METASTATIC
     Dosage: ATEZOLIZUMAB ADMINISTERED INTRAVENOUSLY AT A FIXED DOSE OF 1200 MG ON DAY 1 OF EACH 21-DAY CYCLE ( A
     Route: 042
     Dates: start: 20151201
  2. ATENOLOL. [Concomitant]
     Active Substance: ATENOLOL
     Route: 048
     Dates: start: 201711
  3. LANSOPRAZOLE. [Concomitant]
     Active Substance: LANSOPRAZOLE
     Indication: GASTROOESOPHAGEAL REFLUX DISEASE
     Route: 048
     Dates: start: 2011
  4. DIPROSONE [Concomitant]
     Active Substance: BETAMETHASONE DIPROPIONATE
     Indication: ECZEMA
     Dosage: DOSE: 1 OTHER
     Route: 061
     Dates: start: 201606
  5. CIFLOX (FRANCE) [Concomitant]
     Active Substance: CIPROFLOXACIN
     Indication: URINARY TRACT INFECTION
     Route: 048
     Dates: start: 20170830, end: 20170920
  6. ALDACTAZINE [Concomitant]
     Active Substance: ALTHIAZIDE\SPIRONOLACTONE
     Route: 048
     Dates: start: 20161213
  7. LACTULOSE. [Concomitant]
     Active Substance: LACTULOSE
     Indication: CONSTIPATION
     Dosage: DOSE: 1 OTHER
     Route: 048
     Dates: start: 20160323, end: 201610
  8. ALVESCO [Concomitant]
     Active Substance: CICLESONIDE
     Indication: ASTHMA
     Route: 050
     Dates: start: 20171123
  9. TRIATEC (FRANCE) [Concomitant]
     Active Substance: RAMIPRIL
     Indication: HYPERTENSION
     Route: 048
     Dates: start: 20160412, end: 201711
  10. ALLOPURINOL. [Concomitant]
     Active Substance: ALLOPURINOL
     Indication: PROPHYLAXIS
     Route: 048
     Dates: start: 2012
  11. LIPUR [Concomitant]
     Active Substance: GEMFIBROZIL
     Indication: HYPERCHOLESTEROLAEMIA
     Route: 048
     Dates: start: 2000, end: 201711
  12. LIPUR [Concomitant]
     Active Substance: GEMFIBROZIL
     Route: 048
     Dates: start: 20161213
  13. DEXERYL (FRANCE) [Concomitant]
     Active Substance: GLYCERIN\MINERAL OIL\PETROLATUM
     Indication: XEROSIS
     Route: 061
     Dates: start: 20160202, end: 20170315
  14. FORLAX [Concomitant]
     Active Substance: POLYETHYLENE GLYCOL 4000
     Indication: CONSTIPATION
     Dosage: DOSE: 2 OTHER
     Route: 048
     Dates: start: 201602, end: 201705
  15. VOLTARENE (DICLOFENAC DIETHYLAMINE) [Concomitant]
     Active Substance: DICLOFENAC DIETHYLAMINE
     Indication: BACK PAIN
     Dosage: DOSE: 1 OTHER
     Route: 061
     Dates: start: 20170405
  16. OROKEN [Concomitant]
     Active Substance: CEFIXIME
     Indication: URINARY TRACT INFECTION
     Route: 048
     Dates: start: 20170616, end: 20170626
  17. TRIATEC (FRANCE) [Concomitant]
     Active Substance: RAMIPRIL
     Route: 048
     Dates: start: 20180530
  18. ATENOLOL. [Concomitant]
     Active Substance: ATENOLOL
     Route: 048
     Dates: start: 20161213
  19. LIPUR [Concomitant]
     Active Substance: GEMFIBROZIL
     Route: 048
     Dates: start: 201711
  20. DOLIPRANE [Concomitant]
     Active Substance: ACETAMINOPHEN
     Indication: BACK PAIN
     Route: 048
     Dates: start: 20170405
  21. DAKIN (FRANCE) [Concomitant]
     Indication: ECZEMA
     Dosage: 1 OTHER
     Route: 061
     Dates: start: 20170405
  22. FORLAX [Concomitant]
     Active Substance: POLYETHYLENE GLYCOL 4000
     Dosage: DOSE: 1 OTHER
     Route: 048
     Dates: start: 201610, end: 201705
  23. IMODIUM [Concomitant]
     Active Substance: LOPERAMIDE HYDROCHLORIDE
     Indication: DIARRHOEA
     Route: 048
     Dates: start: 20171128
  24. PRIMPERAN [Concomitant]
     Active Substance: METOCLOPRAMIDE HYDROCHLORIDE
     Indication: NAUSEA
     Route: 048
     Dates: start: 20151201, end: 201705
  25. TRIATEC (FRANCE) [Concomitant]
     Active Substance: RAMIPRIL
     Route: 048
     Dates: start: 201711, end: 20180521
  26. ALDACTAZINE [Concomitant]
     Active Substance: ALTHIAZIDE\SPIRONOLACTONE
     Indication: HYPERTENSION
     Route: 048
     Dates: start: 201506
  27. SMECTA [Concomitant]
     Active Substance: MONTMORILLONITE
     Indication: DIARRHOEA
     Dosage: 2 OTHER
     Route: 048
     Dates: start: 20170614
  28. MITOSYL (FRANCE) [Concomitant]
     Indication: ECZEMA
     Dosage: 1 OTHER
     Route: 061
     Dates: start: 20161213, end: 20170307
  29. VENTOLINE [Concomitant]
     Active Substance: ALBUTEROL
     Indication: ASTHMA
     Dosage: 16 INHALATION
     Route: 048
     Dates: start: 20171123
  30. ATENOLOL. [Concomitant]
     Active Substance: ATENOLOL
     Indication: HYPERTENSION
     Route: 048
     Dates: start: 201506
  31. CICALFATE [Concomitant]
     Indication: ECZEMA
     Dosage: 1 UNIT
     Route: 061
     Dates: start: 20171227, end: 20180106

REACTIONS (2)
  - Enterocolitis haemorrhagic [Not Recovered/Not Resolved]
  - Colitis ulcerative [Not Recovered/Not Resolved]

NARRATIVE: CASE EVENT DATE: 20170330
